FAERS Safety Report 5843331-0 (Version None)
Quarter: 2008Q3

REPORT INFORMATION
  Report Type: 
  Country: None (occurrence: None)
  Receive Date: 20080813
  Receipt Date: 20080806
  Transmission Date: 20090109
  Serious: Yes (Other)
  Sender: FDA-Public Use
  Company Number: ZA-ASTRAZENECA-2008SE03774

PATIENT
  Age: 22 Year
  Sex: Female
  Weight: 48 kg

DRUGS (2)
  1. SEROQUEL [Suspect]
     Indication: OBSESSIVE THOUGHTS
     Route: 048
     Dates: start: 20071101, end: 20071225
  2. CYMBALTA [Concomitant]
     Indication: DEPRESSION
     Route: 048
     Dates: start: 20071107, end: 20071225

REACTIONS (1)
  - FACIAL SPASM [None]
